FAERS Safety Report 8315032-0 (Version None)
Quarter: 2012Q2

REPORT INFORMATION
  Report Type: 
  Country: None (occurrence: None)
  Receive Date: 20120426
  Receipt Date: 20120416
  Transmission Date: 20120825
  Serious: Yes (Hospitalization, Other)
  Sender: FDA-Public Use
  Company Number: US-ELI_LILLY_AND_COMPANY-US201103007160

PATIENT
  Sex: Female
  Weight: 58.957 kg

DRUGS (20)
  1. FEMARA [Concomitant]
     Dosage: 2.5 MG, QD
  2. CHLORDIAZEPOXIDE W/CLIDINIUM BROMIDE [Concomitant]
     Dosage: UNK, TID
     Route: 048
  3. MORPHINE [Concomitant]
     Indication: OSTEOARTHRITIS
     Dosage: UNK
  4. TRAMADOL HCL [Concomitant]
     Dosage: UNK UNK, PRN
  5. BENEFIBER [Concomitant]
     Dosage: UNK, QD
  6. CALTRATE PLUS-D [Concomitant]
     Dosage: UNK, QD
     Route: 048
  7. FORTEO [Suspect]
     Dosage: 20 UG, QD
     Route: 058
  8. FEMARA [Concomitant]
     Dosage: 2.5 MG, QD
     Route: 048
  9. METOPROLOL TARTRATE [Concomitant]
     Dosage: 25 MG, QD
  10. TOPROL-XL [Concomitant]
     Dosage: 25 MG, QD
     Route: 048
  11. VOLTAREN                                /SCH/ [Concomitant]
     Indication: BACK PAIN
     Dosage: UNK, TID
     Route: 061
  12. BISPHOSPHONATES [Concomitant]
     Indication: OSTEOPOROSIS
     Dosage: UNK
  13. COUMADIN [Concomitant]
     Dosage: 5 MG, UNK
  14. NEXIUM [Concomitant]
     Dosage: 40 MG, UNK
     Route: 048
  15. FLEXERIL [Concomitant]
     Dosage: 5 MG, BID
     Route: 048
  16. IPRATROPIUM BROMIDE [Concomitant]
     Dosage: 42 UG, TID
  17. CALCIUM + VITAMIN D [Concomitant]
     Indication: OSTEOPOROSIS
     Dosage: UNK
  18. MIRALAX [Concomitant]
     Dosage: 17 G, QD
     Route: 048
  19. FORTEO [Suspect]
     Indication: OSTEOPOROSIS
     Dosage: 20 UG, QD
     Route: 058
     Dates: start: 20101117
  20. PREDNISONE TAB [Concomitant]
     Indication: SYSTEMIC LUPUS ERYTHEMATOSUS
     Dosage: 3 MG, QD
     Route: 048

REACTIONS (10)
  - BURSITIS [None]
  - SUBDURAL HAEMATOMA [None]
  - MUSCULOSKELETAL DISCOMFORT [None]
  - HEAD INJURY [None]
  - ABDOMINAL DISCOMFORT [None]
  - NAUSEA [None]
  - COAGULOPATHY [None]
  - FOOT FRACTURE [None]
  - DEEP VEIN THROMBOSIS [None]
  - FALL [None]
